FAERS Safety Report 8247754-4 (Version None)
Quarter: 2012Q1

REPORT INFORMATION
  Report Type: 
  Country: None (occurrence: None)
  Receive Date: 20120330
  Receipt Date: 20120320
  Transmission Date: 20120608
  Serious: Yes (Hospitalization)
  Sender: FDA-Public Use
  Company Number: FR-GLAXOSMITHKLINE-B0789709A

PATIENT
  Sex: Female
  Weight: 46.3 kg

DRUGS (10)
  1. PROGRAF [Concomitant]
  2. AUGMENTIN '125' [Concomitant]
     Indication: PYELONEPHRITIS
     Dates: start: 20120101
  3. IMIPENEM AND CILASTATIN SODIUM [Concomitant]
     Indication: PYELONEPHRITIS
     Dates: start: 20111201, end: 20120101
  4. OFLOXACIN [Concomitant]
     Dates: start: 20120101
  5. IMURAN [Concomitant]
     Dates: start: 20100301, end: 20120201
  6. OMEPRAZOLE [Concomitant]
     Dates: start: 20111201, end: 20120201
  7. CORTICOIDS [Concomitant]
     Indication: TRANSPLANT REJECTION
     Dates: start: 20111201, end: 20111201
  8. SECTRAL [Concomitant]
  9. VALACYCLOVIR HYDROCHLORIDE [Suspect]
     Indication: PRODUCT USED FOR UNKNOWN INDICATION
     Route: 048
     Dates: start: 20111201, end: 20120207
  10. BACTRIM [Suspect]
     Indication: PRODUCT USED FOR UNKNOWN INDICATION
     Route: 048
     Dates: start: 20111201, end: 20120207

REACTIONS (1)
  - AGRANULOCYTOSIS [None]
